FAERS Safety Report 15239899 (Version 1)
Quarter: 2018Q3

REPORT INFORMATION
  Report Type: Spontaneous
  Country: GB (occurrence: GB)
  Receive Date: 20180803
  Receipt Date: 20180803
  Transmission Date: 20181010
  Serious: Yes (Other)
  Sender: FDA-Public Use
  Company Number: PHHY2018GB060855

PATIENT
  Age: 70 Year
  Sex: Male
  Weight: 64 kg

DRUGS (7)
  1. SALBUTAMOL [Concomitant]
     Active Substance: ALBUTEROL
     Indication: PRODUCT USED FOR UNKNOWN INDICATION
     Dosage: 12 DFUG/L), QD (MAXIMUM.)
     Route: 065
     Dates: start: 20180105
  2. SALBUTAMOL [Concomitant]
     Active Substance: ALBUTEROL
     Dosage: 12 DFUG/L), QD (MAXIMUM.)
     Route: 065
     Dates: start: 20180518
  3. CLENIL MODULITE [Concomitant]
     Active Substance: BECLOMETHASONE DIPROPIONATE
     Dosage: UNK (1?2 SHOTS TWICE A DAY.)
     Route: 065
     Dates: start: 20180518
  4. ACETYLSALICYLIC ACID [Suspect]
     Active Substance: ASPIRIN
     Indication: PRODUCT USED FOR UNKNOWN INDICATION
     Dosage: UNK
     Route: 065
  5. SALMETEROL [Concomitant]
     Active Substance: SALMETEROL
     Indication: PRODUCT USED FOR UNKNOWN INDICATION
     Dosage: 4 DF(UG/L), QD (PUFFS)
     Route: 055
     Dates: start: 20180105
  6. CLENIL MODULITE [Concomitant]
     Active Substance: BECLOMETHASONE DIPROPIONATE
     Indication: PRODUCT USED FOR UNKNOWN INDICATION
     Dosage: UNK (1?2 SHOTS TWICE A DAY.)
     Route: 065
     Dates: start: 20180105
  7. SALMETEROL [Concomitant]
     Active Substance: SALMETEROL
     Dosage: 4 DF(UG/L), QD (PUFFS)
     Route: 055
     Dates: start: 20180430

REACTIONS (2)
  - Swollen tongue [Recovered/Resolved]
  - Rash [Recovered/Resolved]
